FAERS Safety Report 21298169 (Version 5)
Quarter: 2023Q1

REPORT INFORMATION
  Report Type: Spontaneous
  Country: US (occurrence: US)
  Receive Date: 20220906
  Receipt Date: 20230329
  Transmission Date: 20230418
  Serious: No
  Sender: FDA-Public Use
  Company Number: US-PFIZER INC-PV202200056886

PATIENT
  Age: 28 Year
  Sex: Female

DRUGS (2)
  1. XELJANZ XR [Suspect]
     Active Substance: TOFACITINIB CITRATE
     Indication: Dermatomyositis
     Dosage: UNK
  2. GABAPENTIN [Concomitant]
     Active Substance: GABAPENTIN

REACTIONS (4)
  - Aldolase increased [Unknown]
  - Antinuclear antibody positive [Unknown]
  - Antiphospholipid antibodies positive [Unknown]
  - Off label use [Unknown]
